FAERS Safety Report 21130373 (Version 1)
Quarter: 2022Q3

REPORT INFORMATION
  Report Type: Spontaneous
  Country: GB (occurrence: GB)
  Receive Date: 20220726
  Receipt Date: 20220726
  Transmission Date: 20221027
  Serious: Yes (Hospitalization)
  Sender: FDA-Public Use
  Company Number: GB-MHRA-MIDB-64bc0cad-0450-4919-97ed-41013e381e45

PATIENT
  Age: 94 Year
  Sex: Female

DRUGS (15)
  1. AMLODIPINE [Suspect]
     Active Substance: AMLODIPINE BESYLATE
     Indication: Product used for unknown indication
     Dosage: 5 MILLIGRAM, ONCE A DAY,5MG TABLETS ONE TO BE TAKEN EACH DAY 28 TABLET
     Route: 065
  2. ALLOPURINOL [Concomitant]
     Active Substance: ALLOPURINOL
     Indication: Product used for unknown indication
     Dosage: 100 MILLIGRAM, ONCE A DAY,100MG TABLETS ONE TO BE TAKEN EACH DAY
     Route: 065
  3. ANISEED [Concomitant]
     Indication: Product used for unknown indication
     Dosage: UNK
     Route: 065
  4. ASPIRIN [Concomitant]
     Active Substance: ASPIRIN
     Indication: Product used for unknown indication
     Dosage: 75 MILLIGRAM, ONCE A DAY,75MG GASTRO-RESISTANT TABLETS ONE TO BE TAKEN EACH DAY 28 TABLET
     Route: 065
  5. CALCIUM\VITAMIN D [Concomitant]
     Active Substance: CALCIUM\VITAMIN D
     Indication: Product used for unknown indication
     Dosage: 1.5 MILLIGRAM, TWO TIMES A DAY,400UNIT / CALCIUM CARBONATE 1.5G CHEWABLE TABLETS TAKE ONE TABLET TWI
     Route: 065
  6. DOCUSATE [Concomitant]
     Active Substance: DOCUSATE
     Indication: Product used for unknown indication
     Dosage: 100 MILLIGRAM,100MG CAPSULES TWO TO BE TAKEN TWICE A DAY WHEN REQUIRED
     Route: 065
  7. HYALURONATE SODIUM [Concomitant]
     Active Substance: HYALURONATE SODIUM
     Indication: Product used for unknown indication
     Dosage: 0.2 PERCENT,0.2% EYE DROPS PRESERVATIVE FREE, INSTIL ONE DROP IN THE LEFT EYE AS REQUIRED AS 10 ML
     Route: 065
  8. UNSPECIFIED INGREDIENT [Concomitant]
     Active Substance: UNSPECIFIED INGREDIENT
     Indication: Product used for unknown indication
     Dosage: 1 DOSAGE FORM, FOUR TIMES/DAY,ONE DROP BOTH EYES FOUR TIMES A DAY WHEN REQUIRED AS DIRECTED BY EYE C
     Route: 065
  9. IBUPROFEN [Concomitant]
     Active Substance: IBUPROFEN
     Indication: Product used for unknown indication
     Dosage: 5 PERCENT, 3 TIMES A DAY,5% GEL APPLY UP TO THREE TIMES A DAY
     Route: 065
  10. LANSOPRAZOLE [Concomitant]
     Active Substance: LANSOPRAZOLE
     Indication: Product used for unknown indication
     Dosage: 15 MILLIGRAM, ONCE A DAY,15MG GASTRO-RESISTANT CAPSULES ONE TO BE TAKEN EACH MORNING
     Route: 065
  11. POLYETHYLENE GLYCOL 3350\POTASSIUM CHLORIDE\SODIUM BICARBONATE\SODIUM [Concomitant]
     Active Substance: POLYETHYLENE GLYCOL 3350\POTASSIUM CHLORIDE\SODIUM BICARBONATE\SODIUM CHLORIDE
     Indication: Constipation
     Dosage: UNK,ONE OR TWO SACHETS DISSOLVED IN WATER EACH MORNING IF REQUIRED FOR CONSTIPATION
     Route: 065
  12. MEMANTINE [Concomitant]
     Active Substance: MEMANTINE
     Indication: Product used for unknown indication
     Dosage: 15 MILLIGRAM,15MG TABLETS
     Route: 065
  13. MIRABEGRON [Concomitant]
     Active Substance: MIRABEGRON
     Indication: Product used for unknown indication
     Dosage: 25 MILLIGRAM, ONCE A DAY, 25MG MODIFIED-RELEASE TABLETS ONE TO BE TAKEN EACH DAY
     Route: 065
  14. ACETAMINOPHEN [Concomitant]
     Active Substance: ACETAMINOPHEN
     Indication: Product used for unknown indication
     Dosage: 500 MILLIGRAM, FOUR TIMES/DAY,500MG CAPSULES 1 TO 2 CAPSULES UP TO FOUR TIMES DAILY AS REQUIRED
     Route: 065
  15. SENNA [Concomitant]
     Active Substance: SENNA LEAF\SENNOSIDES\SENNOSIDES A AND B
     Indication: Constipation
     Dosage: 7.5 MILLIGRAM, ONCE A DAY, 7.5MG TABLETS TWO TO BE TAKEN AT NIGHT WHEN REQUIRED FOR CONSTIPATION ONL
     Route: 065

REACTIONS (1)
  - Oedema peripheral [Unknown]
